FAERS Safety Report 4970205-X (Version None)
Quarter: 2006Q2

REPORT INFORMATION
  Report Type: 
  Country: None (occurrence: None)
  Receive Date: 20060412
  Receipt Date: 20060331
  Transmission Date: 20061013
  Serious: Yes (Other)
  Sender: FDA-Public Use
  Company Number: JP-JNJFOC-20060302345

PATIENT
  Sex: Male

DRUGS (10)
  1. LEUSTATIN [Suspect]
     Dosage: TOTAL DOSE: 5MG
     Route: 042
  2. SARPOGRELATE [Concomitant]
     Indication: CEREBRAL INFARCTION
     Route: 048
  3. DEXAMETHASONE [Concomitant]
  4. BUPRENORPHINE HCL [Concomitant]
     Indication: PAIN
  5. PROCHLORPERAZINE [Concomitant]
     Indication: CHRONIC LYMPHOCYTIC LEUKAEMIA
  6. ETODOLAC [Concomitant]
     Indication: PAIN
     Route: 048
  7. IBUDILAST [Concomitant]
     Indication: CEREBRAL INFARCTION
     Route: 048
  8. REBAMIPIDE [Concomitant]
     Route: 048
  9. ASPIRIN [Concomitant]
     Indication: CEREBRAL INFARCTION
     Route: 048
  10. DIMETICONE [Concomitant]
     Route: 048

REACTIONS (8)
  - ANAEMIA [None]
  - ANGINA PECTORIS [None]
  - CATHETER RELATED INFECTION [None]
  - DISSEMINATED INTRAVASCULAR COAGULATION [None]
  - SEPSIS [None]
  - TACHYCARDIA [None]
  - THROMBOCYTOPENIA [None]
  - TUMOUR LYSIS SYNDROME [None]
